FAERS Safety Report 20670678 (Version 1)
Quarter: 2022Q2

REPORT INFORMATION
  Report Type: Spontaneous
  Country: US (occurrence: None)
  Receive Date: 20220401
  Receipt Date: 20220401
  Transmission Date: 20220720
  Serious: Yes (Hospitalization)
  Sender: FDA-Public Use
  Company Number: None

PATIENT
  Age: 62 Year
  Sex: Male

DRUGS (16)
  1. TADALAFIL [Suspect]
     Active Substance: TADALAFIL
     Indication: Pulmonary embolism
     Route: 048
     Dates: start: 20181126
  2. ATORVASTATIN TAB 10MG [Concomitant]
  3. FUROSEMIDE TAB 80MG [Concomitant]
  4. GABAPENTIN CAP 100MG [Concomitant]
  5. JARDIANCE TAB 25MG [Concomitant]
  6. LANTUS SOLOS INJ 100/ML [Concomitant]
  7. LEVOTHYROXIN TAB 25MCG [Concomitant]
  8. NOVOLOG [Concomitant]
     Active Substance: INSULIN ASPART
  9. OPSUMIT TAB 10MG [Concomitant]
  10. SPIRONOLACT TAB 100MG [Concomitant]
  11. TADALAFIL [Concomitant]
     Active Substance: TADALAFIL
  12. TAMSULOSIN [Concomitant]
     Active Substance: TAMSULOSIN
  13. TRULICITY INJ 0.75/0.5; [Concomitant]
  14. TYVASO START SOL 0.6MG/ML [Concomitant]
  15. XIFAXAN [Concomitant]
     Active Substance: RIFAXIMIN
  16. ZOFRAN TAB 4MG [Concomitant]

REACTIONS (1)
  - Fluid retention [None]

NARRATIVE: CASE EVENT DATE: 20220321
